FAERS Safety Report 25541545 (Version 6)
Quarter: 2025Q4

REPORT INFORMATION
  Report Type: Report from Study
  Country: EU (occurrence: EU)
  Receive Date: 20250711
  Receipt Date: 20251114
  Transmission Date: 20260117
  Serious: Yes (Other)
  Sender: INSMED
  Company Number: EU-INSMED, INC.-2025-02568-FR

PATIENT
  Sex: Female
  Weight: 68 kg

DRUGS (2)
  1. ARIKAYCE [Suspect]
     Active Substance: AMIKACIN
     Indication: Atypical mycobacterial infection
     Dosage: 590 MILLIGRAM, QD
     Route: 055
     Dates: start: 20250702, end: 2025
  2. ARIKAYCE [Suspect]
     Active Substance: AMIKACIN
     Dosage: 590 MILLIGRAM, TIW
     Route: 055
     Dates: start: 2025

REACTIONS (32)
  - Bronchial obstruction [Unknown]
  - Bronchitis [Unknown]
  - Suffocation feeling [Unknown]
  - Tremor [Unknown]
  - Restless legs syndrome [Unknown]
  - Gastrointestinal pain [Unknown]
  - Tongue discomfort [Unknown]
  - Ageusia [Unknown]
  - Respiratory disorder [Unknown]
  - Condition aggravated [Unknown]
  - Oxygen therapy [Unknown]
  - Mouth ulceration [Unknown]
  - Cystitis [Not Recovered/Not Resolved]
  - Dry skin [Unknown]
  - Sputum discoloured [Unknown]
  - Neck pain [Unknown]
  - Decreased appetite [Unknown]
  - Dyspnoea exertional [Not Recovered/Not Resolved]
  - Pruritus [Not Recovered/Not Resolved]
  - Weight decreased [Unknown]
  - Oral pain [Unknown]
  - Myalgia [Unknown]
  - Nausea [Recovering/Resolving]
  - Dyspnoea [Not Recovered/Not Resolved]
  - Cough [Not Recovered/Not Resolved]
  - Oral discomfort [Unknown]
  - Fatigue [Unknown]
  - Throat irritation [Unknown]
  - Productive cough [Unknown]
  - Tinnitus [Not Recovered/Not Resolved]
  - Oral mucosa atrophy [Not Recovered/Not Resolved]
  - Dizziness [Unknown]

NARRATIVE: CASE EVENT DATE: 20250101
